FAERS Safety Report 9507286 (Version 1)
Quarter: 2013Q1

REPORT INFORMATION
  Report Type: Spontaneous
  Country: US (occurrence: None)
  Receive Date: 20130305
  Receipt Date: 20130305
  Transmission Date: 20140127
  Serious: Yes (Other)
  Sender: FDA-Public Use
  Company Number: 163-21880-07070579

PATIENT
  Sex: Female
  Weight: 63.5 kg

DRUGS (11)
  1. REVLIMID [Suspect]
     Indication: PLASMA CELL MYELOMA
     Route: 048
     Dates: start: 200610
  2. LASIX (FUROSEMIDE) [Concomitant]
  3. ACYCLOVIR  (ACICLOVIR) [Concomitant]
  4. FOSAMAX (ALENDRONATE SODIUM) [Concomitant]
  5. VELCADE ( BORTEZOMIB) [Concomitant]
  6. DEXAMETHASONE (DEXAMETHASONE) [Concomitant]
  7. CYTOXAN (CYCLOPHOSPHAMIDE) [Concomitant]
  8. BACTRIM (BACTRIM) [Concomitant]
  9. BIAXIN (CLARITHROMYCIN) [Concomitant]
  10. PREDNISONE (PREDNISONE) [Concomitant]
  11. MELPHALAN [Concomitant]

REACTIONS (4)
  - Hypersensitivity [None]
  - Swelling face [None]
  - Urticaria [None]
  - Pruritus [None]
